FAERS Safety Report 14569195 (Version 1)
Quarter: 2018Q1

REPORT INFORMATION
  Report Type: Spontaneous
  Country: US (occurrence: US)
  Receive Date: 20180223
  Receipt Date: 20180223
  Transmission Date: 20180509
  Serious: No
  Sender: FDA-Public Use
  Company Number: None

PATIENT
  Age: 54 Year
  Sex: Female
  Weight: 80.1 kg

DRUGS (6)
  1. AMBIEN [Concomitant]
     Active Substance: ZOLPIDEM TARTRATE
  2. LYRICA [Suspect]
     Active Substance: PREGABALIN
     Indication: NERVE INJURY
     Dosage: ?          QUANTITY:90 CAPSULE(S);?
     Route: 048
     Dates: start: 20180220, end: 20180220
  3. LORAZEPAM. [Concomitant]
     Active Substance: LORAZEPAM
  4. SOMA [Concomitant]
     Active Substance: CARISOPRODOL
  5. OXYCODONE [Concomitant]
     Active Substance: OXYCODONE
  6. ADVIL [Concomitant]
     Active Substance: IBUPROFEN

REACTIONS (5)
  - Tachyphrenia [None]
  - Panic disorder [None]
  - Rash [None]
  - Flushing [None]
  - Swelling face [None]

NARRATIVE: CASE EVENT DATE: 20180220
